FAERS Safety Report 11422682 (Version 1)
Quarter: 2015Q3

REPORT INFORMATION
  Report Type: Spontaneous
  Country: US (occurrence: None)
  Receive Date: 20150826
  Receipt Date: 20150826
  Transmission Date: 20151125
  Serious: Yes (Hospitalization)
  Sender: FDA-Public Use
  Company Number: None

PATIENT
  Age: 39 Year
  Sex: Female
  Weight: 45.36 kg

DRUGS (7)
  1. GI REVIVE [Concomitant]
  2. OMEGA 3 [Concomitant]
     Active Substance: OMEGA-3 FATTY ACIDS
  3. NYSTATIN. [Concomitant]
     Active Substance: NYSTATIN
  4. VSL#3 [Concomitant]
     Active Substance: PROBIOTICS NOS
  5. DIFLUCAN [Suspect]
     Active Substance: FLUCONAZOLE
     Indication: ORAL CANDIDIASIS
     Route: 042
     Dates: start: 20150715, end: 20150719
  6. WOMEN^S ONE A DAY VITAMIN [Concomitant]
  7. OIL OF OREGANO [Concomitant]

REACTIONS (2)
  - Anaemia [None]
  - Leukopenia [None]

NARRATIVE: CASE EVENT DATE: 20150629
